FAERS Safety Report 9200829 (Version 1)
Quarter: 2013Q1

REPORT INFORMATION
  Report Type: Spontaneous
  Country: US (occurrence: None)
  Receive Date: 20130328
  Receipt Date: 20130328
  Transmission Date: 20140127
  Serious: No
  Sender: FDA-Public Use
  Company Number: None

PATIENT
  Age: 46 Year
  Sex: Male
  Weight: 75 kg

DRUGS (4)
  1. VENTOLIN HFA 90MCG GLAXOSMITHKLINE [Suspect]
     Indication: BRONCHITIS
     Dosage: USED TWICE ?EVERY EVERY 4 -6 HOURS
  2. VENTOLIN HFA 90MCG GLAXOSMITHKLINE [Suspect]
     Indication: WHEEZING
     Dosage: USED TWICE ?EVERY EVERY 4 -6 HOURS
  3. VENTOLIN HFA 90MCG GLAXOSMITHKLINE [Suspect]
     Indication: DYSPNOEA
     Dosage: USED TWICE ?EVERY EVERY 4 -6 HOURS
  4. LEVOFLOXACIN 750MG CVS. MFR: DR. REDDY^S LAB [Concomitant]

REACTIONS (3)
  - Syncope [None]
  - Tooth loss [None]
  - Respiratory tract infection [None]
